FAERS Safety Report 5538018-8 (Version None)
Quarter: 2007Q4

REPORT INFORMATION
  Report Type: 
  Country: None (occurrence: None)
  Receive Date: 20071207
  Receipt Date: 20071114
  Transmission Date: 20080405
  Serious: No
  Sender: FDA-Public Use
  Company Number: US-BOEHRINGER INGELHEIM PHARMACEUTICALS, INC.-2007-BP-24597BP

PATIENT
  Age: 86 Year
  Sex: Female
  Weight: 70 kg

DRUGS (8)
  1. MICARDIS [Suspect]
     Indication: HYPERTENSION
     Route: 048
     Dates: start: 20051101
  2. FUROSEMIDE [Suspect]
     Indication: HYPERTENSION
     Dates: start: 20061101
  3. ATENOLOL [Concomitant]
     Indication: HYPERTENSION
  4. WARFARIN SODIUM [Concomitant]
     Indication: ANTICOAGULANT THERAPY
  5. WARFARIN SODIUM [Concomitant]
     Indication: CORONARY ARTERY DISEASE
  6. PLAVIX [Concomitant]
     Indication: CORONARY ARTERY DISEASE
  7. PLAVIX [Concomitant]
     Indication: ANTICOAGULANT THERAPY
  8. VYTORIN [Concomitant]
     Indication: HYPERLIPIDAEMIA

REACTIONS (2)
  - BALANCE DISORDER [None]
  - DIZZINESS [None]
